FAERS Safety Report 6110694-0 (Version None)
Quarter: 2009Q1

REPORT INFORMATION
  Report Type: 
  Country: None (occurrence: None)
  Receive Date: 20090309
  Receipt Date: 20090209
  Transmission Date: 20090719
  Serious: Yes (Other)
  Sender: FDA-Public Use
  Company Number: 200500

PATIENT
  Age: 24 Year
  Sex: Male
  Weight: 77.1115 kg

DRUGS (7)
  1. VINCRISTINE SULFATE [Suspect]
     Indication: EWING'S SARCOMA
  2. CYCLOPHOSPHAMIDE [Suspect]
     Indication: EWING'S SARCOMA
     Dosage: 0.4 G/M^2/WK
  3. DOXORUBICIN HCL [Suspect]
     Indication: EWING'S SARCOMA
     Dosage: 12.5 MG/M^2/WK
  4. ETOPOSIDE [Suspect]
     Indication: EWING'S SARCOMA
     Dosage: 100 MG/M^2/WK
  5. IFOSFAMIDE [Suspect]
     Indication: EWING'S SARCOMA
     Dosage: 2.4 G/M^2/WK
  6. (THERAPEUTIC RADIOPHARMACEUTICALS) [Suspect]
     Indication: EWING'S SARCOMA
     Dosage: 55.8 GY
  7. NEUPOGEN [Suspect]
     Indication: EWING'S SARCOMA

REACTIONS (2)
  - ACUTE LYMPHOCYTIC LEUKAEMIA [None]
  - COMPLICATIONS OF BONE MARROW TRANSPLANT [None]
